FAERS Safety Report 12136267 (Version 1)
Quarter: 2016Q1

REPORT INFORMATION
  Report Type: Report from Study
  Country: CN (occurrence: CN)
  Receive Date: 20160302
  Receipt Date: 20160302
  Transmission Date: 20160526
  Serious: Yes (Other)
  Sender: FDA-Public Use
  Company Number: CN-SUN PHARMACEUTICAL INDUSTRIES LTD-2016R1-112385

PATIENT
  Sex: Male

DRUGS (2)
  1. IRINOTECAN [Suspect]
     Active Substance: IRINOTECAN
     Indication: HEPATOBLASTOMA RECURRENT
     Dosage: 50 MG/M^2/DAY ON DAYS 1-5
     Route: 065
  2. VINCRISTINE [Suspect]
     Active Substance: VINCRISTINE
     Indication: HEPATOBLASTOMA RECURRENT
     Dosage: 1.5 MG/M^2/DAY ON DAY 1 AND REPEATED EVERY THREE WEEKS
     Route: 065

REACTIONS (1)
  - Disease progression [Unknown]
